FAERS Safety Report 9557941 (Version 3)
Quarter: 2013Q4

REPORT INFORMATION
  Report Type: Spontaneous
  Country: NO (occurrence: NO)
  Receive Date: 20130926
  Receipt Date: 20131108
  Transmission Date: 20140711
  Serious: Yes (Hospitalization)
  Sender: FDA-Public Use
  Company Number: NO-BRISTOL-MYERS SQUIBB COMPANY-19381326

PATIENT
  Age: 69 Year
  Sex: Female

DRUGS (8)
  1. ELIQUIS [Suspect]
     Indication: ATRIAL FIBRILLATION
     Route: 048
     Dates: start: 20130818, end: 20130828
  2. IBUX [Interacting]
     Indication: OSTEOARTHRITIS
     Dosage: 400MG*3?400MG UP TO 4 TIMES/D PRIOR TO GI BLEEDING
     Route: 048
     Dates: start: 20130828, end: 20130828
  3. METOPROLOL [Concomitant]
     Indication: ATRIAL FIBRILLATION
     Route: 048
     Dates: start: 20130818
  4. BURINEX [Concomitant]
     Indication: CARDIAC FAILURE
     Route: 048
  5. LOSARTAN POTASSIUM + HCTZ [Concomitant]
     Indication: HYPERTENSION
     Dosage: LOSARTAN POTASSIUM/HCTZ 50/12.5
  6. SIMVASTATIN [Concomitant]
     Indication: HYPERCHOLESTEROLAEMIA
     Route: 048
  7. CETIRIZINE [Concomitant]
     Indication: HYPERSENSITIVITY
     Route: 048
  8. SAROTEX [Concomitant]
     Route: 048

REACTIONS (4)
  - Cerebral infarction [Recovered/Resolved with Sequelae]
  - Duodenal ulcer haemorrhage [Recovered/Resolved]
  - Myocardial infarction [Unknown]
  - Drug interaction [Unknown]
